FAERS Safety Report 8401581-3 (Version None)
Quarter: 2012Q2

REPORT INFORMATION
  Report Type: 
  Country: None (occurrence: None)
  Receive Date: 20120529
  Receipt Date: 19911219
  Transmission Date: 20120825
  Serious: Yes (Death, Hospitalization, Other)
  Sender: FDA-Public Use
  Company Number: 003891

PATIENT
  Age: 53 Year
  Sex: Male

DRUGS (14)
  1. METOPROLOL TARTRATE [Concomitant]
  2. ENALAPRIL MALEATE [Concomitant]
  3. RANITIDINE HYDROCHLORIDE [Concomitant]
  4. PREDNISOLONE [Concomitant]
  5. INDOMETHACIN [Concomitant]
  6. WARFARIN POTASSIUM (WARFARIN POTASSIUM) [Concomitant]
  7. SACRALFATE (SACRALFATE) [Concomitant]
  8. PLETAL [Suspect]
     Dosage: 200 MG, DAILY DOSE, ORAL
     Route: 048
     Dates: start: 19911106, end: 19911214
  9. FUROSEMIDE [Concomitant]
  10. CALCIUM POLYSTYRENE SULFONATE (CALCIUM POLYSTYRENE SULFONATE) [Concomitant]
  11. ALLOPURINOL [Concomitant]
  12. SODIUM AZULENE SULFONATE - I-GLUTAMINE) [Concomitant]
  13. NLVADIPINE (NILVADIPINE) [Concomitant]
  14. HUMAN SERUM ALBUAMIN (HUMAN SERUM ALBUMIN) [Concomitant]

REACTIONS (11)
  - PULMONARY HAEMORRHAGE [None]
  - BLOOD GLUCOSE INCREASED [None]
  - PYREXIA [None]
  - CYANOSIS [None]
  - HAEMOPTYSIS [None]
  - PNEUMONIA [None]
  - COUGH [None]
  - GLUCOSE TOLERANCE IMPAIRED [None]
  - GLUCOSE URINE PRESENT [None]
  - LOSS OF CONSCIOUSNESS [None]
  - PLEURAL EFFUSION [None]
